FAERS Safety Report 18730467 (Version 1)
Quarter: 2021Q1

REPORT INFORMATION
  Report Type: Spontaneous
  Country: FR (occurrence: FR)
  Receive Date: 20210112
  Receipt Date: 20210112
  Transmission Date: 20210419
  Serious: Yes (Hospitalization)
  Sender: FDA-Public Use
  Company Number: FR-TEVA-2021-FR-1867076

PATIENT
  Age: 4 Year
  Sex: Male
  Weight: 15 kg

DRUGS (4)
  1. DOXORUBICINE [Concomitant]
     Active Substance: DOXORUBICIN
     Indication: ACUTE LYMPHOCYTIC LEUKAEMIA
     Dosage: 21 MG
     Route: 041
     Dates: start: 20201117, end: 20201201
  2. VINCRISTINE (SULFATE DE) [Suspect]
     Active Substance: VINCRISTINE SULFATE
     Indication: ACUTE LYMPHOCYTIC LEUKAEMIA
     Dosage: 1.05 MG
     Route: 041
     Dates: start: 20201117, end: 20201201
  3. NOXAFIL [Interacting]
     Active Substance: POSACONAZOLE
     Indication: ANTIFUNGAL PROPHYLAXIS
     Dosage: 168 MG
     Route: 048
     Dates: start: 20200926, end: 20201208
  4. BACTRIM [Concomitant]
     Active Substance: SULFAMETHOXAZOLE\TRIMETHOPRIM
     Indication: ANTIBIOTIC PROPHYLAXIS
     Dosage: 240MG / 48 MG 3 TIMES A WEEK
     Route: 048
     Dates: start: 20200515

REACTIONS (5)
  - Renal tubular disorder [Recovering/Resolving]
  - Hyponatraemia [Recovered/Resolved]
  - Generalised tonic-clonic seizure [Recovered/Resolved]
  - Posterior reversible encephalopathy syndrome [Recovered/Resolved]
  - Drug interaction [Unknown]

NARRATIVE: CASE EVENT DATE: 20201201
